FAERS Safety Report 7395304-7 (Version None)
Quarter: 2011Q2

REPORT INFORMATION
  Report Type: 
  Country: None (occurrence: None)
  Receive Date: 20110405
  Receipt Date: 20110324
  Transmission Date: 20111010
  Serious: Yes (Death, Hospitalization, Disabling)
  Sender: FDA-Public Use
  Company Number: US-CELGENEUS-163-21880-11012745

PATIENT
  Sex: Male
  Weight: 90.7 kg

DRUGS (8)
  1. ASPIRIN [Concomitant]
     Route: 065
  2. REVLIMID [Suspect]
     Indication: MULTIPLE MYELOMA
     Dosage: 25 MILLIGRAM
     Route: 048
     Dates: start: 20101007, end: 20101201
  3. REVLIMID [Suspect]
     Dosage: 15 MILLIGRAM
     Route: 048
     Dates: start: 20101201, end: 20110101
  4. DEXAMETHASONE [Suspect]
     Indication: MULTIPLE MYELOMA
     Dosage: 20 MILLIGRAM
     Route: 048
     Dates: start: 20100930
  5. VELCADE [Suspect]
     Dosage: 2.8 MILLIGRAM
     Route: 065
  6. MAGNESIUM OXIDE [Concomitant]
     Route: 065
  7. LOMOTIL [Concomitant]
     Route: 065
  8. POTASSIUM [Concomitant]
     Route: 065

REACTIONS (9)
  - FATIGUE [None]
  - BLOOD ELECTROLYTES ABNORMAL [None]
  - DECREASED APPETITE [None]
  - HYPOTENSION [None]
  - SUDDEN CARDIAC DEATH [None]
  - WEIGHT DECREASED [None]
  - ASTHENIA [None]
  - DIARRHOEA [None]
  - NEUROPATHY PERIPHERAL [None]
